FAERS Safety Report 19715309 (Version 2)
Quarter: 2021Q3

REPORT INFORMATION
  Report Type: Spontaneous
  Country: DE (occurrence: DE)
  Receive Date: 20210818
  Receipt Date: 20210823
  Transmission Date: 20211014
  Serious: Yes (Hospitalization, Other)
  Sender: FDA-Public Use
  Company Number: DE-MYLANLABS-2021M1052100

PATIENT
  Age: 86 Year
  Sex: Female
  Weight: 64 kg

DRUGS (6)
  1. TORASEMIDE [Suspect]
     Active Substance: TORSEMIDE
     Indication: PRODUCT USED FOR UNKNOWN INDICATION
     Dosage: 20 MILLIGRAM (20 MG, 1?0?0?0, TABLETTEN)
  2. RAMIPRIL. [Suspect]
     Active Substance: RAMIPRIL
     Indication: PRODUCT USED FOR UNKNOWN INDICATION
     Dosage: 2.5 MILLIGRAM (2.5 MG, 0?0?1?0, TABLETTEN)
  3. LERCANIDIPIN ACTAVIS [Concomitant]
     Active Substance: LERCANIDIPINE
     Dosage: 20 MILLIGRAM (20 MG, 0?0?0.5?0, TABLETTEN)
  4. XIPAMID [Suspect]
     Active Substance: XIPAMIDE
     Indication: PRODUCT USED FOR UNKNOWN INDICATION
     Dosage: 10 MILLIGRAM (10 MG, 1?0?0?0, RETARD?DRAGEES)
  5. APIXABAN [Suspect]
     Active Substance: APIXABAN
     Indication: PRODUCT USED FOR UNKNOWN INDICATION
     Dosage: 5 MILLIGRAM (5 MG, 1?0?1?0, TABLETTEN)
  6. METOPROLOL. [Concomitant]
     Active Substance: METOPROLOL
     Dosage: 95 MILLIGRAM (95 MG, 1?0?1?0, RETARD?TABLETTEN)

REACTIONS (6)
  - Haematochezia [Unknown]
  - Anaemia [Unknown]
  - General physical health deterioration [Unknown]
  - Hypotension [Unknown]
  - Fatigue [Unknown]
  - Product prescribing error [Unknown]
